FAERS Safety Report 9926316 (Version 2)
Quarter: 2014Q1

REPORT INFORMATION
  Report Type: Spontaneous
  Country: US (occurrence: US)
  Receive Date: 20140226
  Receipt Date: 20140327
  Transmission Date: 20141002
  Serious: Yes (Hospitalization)
  Sender: FDA-Public Use
  Company Number: US-MYLANLABS-2014S1003713

PATIENT
  Age: 58 Year
  Sex: Female

DRUGS (13)
  1. LISINOPRIL [Suspect]
     Indication: HYPERTENSION
     Dosage: DAILY
     Route: 065
  2. EPINEPHRINE [Suspect]
     Indication: SWOLLEN TONGUE
     Route: 058
  3. EPINEPHRINE [Suspect]
     Indication: ORBITAL OEDEMA
     Route: 058
  4. EPINEPHRINE [Suspect]
     Indication: LIP SWELLING
     Route: 058
  5. DEXAMETHASONE [Suspect]
     Indication: SWOLLEN TONGUE
     Route: 042
  6. DEXAMETHASONE [Suspect]
     Indication: ORBITAL OEDEMA
     Route: 042
  7. DEXAMETHASONE [Suspect]
     Indication: LIP SWELLING
     Route: 042
  8. FAMOTIDINE [Suspect]
     Indication: SWOLLEN TONGUE
  9. FAMOTIDINE [Suspect]
     Indication: ORBITAL OEDEMA
  10. FAMOTIDINE [Suspect]
     Indication: LIP SWELLING
  11. DIPHENHYDRAMINE [Suspect]
     Indication: SWOLLEN TONGUE
  12. DIPHENHYDRAMINE [Suspect]
     Indication: ORBITAL OEDEMA
  13. DIPHENHYDRAMINE [Suspect]
     Indication: LIP SWELLING

REACTIONS (3)
  - Angioedema [Recovered/Resolved]
  - Respiratory failure [Recovered/Resolved]
  - Drug ineffective [Recovered/Resolved]
